FAERS Safety Report 22045988 (Version 1)
Quarter: 2023Q1

REPORT INFORMATION
  Report Type: Spontaneous
  Country: JP (occurrence: JP)
  Receive Date: 20230228
  Receipt Date: 20230228
  Transmission Date: 20230418
  Serious: Yes (Hospitalization, Other)
  Sender: FDA-Public Use
  Company Number: JP-TEVA-2023-JP-2860750

PATIENT
  Age: 68 Year
  Sex: Female

DRUGS (8)
  1. PREDNISOLONE [Suspect]
     Active Substance: PREDNISOLONE
     Indication: COVID-19 pneumonia
     Dosage: .6 MG/KG DAILY; ONCE A DAY , ADDITIONAL INFO: ROUTE: {SYSTEMIC};
     Route: 050
  2. PREDNISOLONE [Suspect]
     Active Substance: PREDNISOLONE
     Indication: Necrotising retinitis
     Dosage: 1.25 MG/KG DAILY; ONCE A DAY , ADDITIONAL INFO: ROUTE: {SYSTEMIC};
     Route: 050
  3. PREDNISOLONE [Suspect]
     Active Substance: PREDNISOLONE
     Dosage: 30 MILLIGRAM DAILY; ONCE A DAY , ADDITIONAL INFO: ROUTE: {SYSTEMIC};
     Route: 050
  4. REMDESIVIR [Concomitant]
     Active Substance: REMDESIVIR
     Indication: COVID-19 pneumonia
     Route: 065
  5. BETAMETHASONE [Concomitant]
     Active Substance: BETAMETHASONE
     Indication: Necrotising retinitis
     Dosage: 4 TIMES/DAY IN THE RIGHT EYE , BETAMETHASONE: 0.10 %
     Route: 061
  6. LEVOFLOXACIN [Concomitant]
     Active Substance: LEVOFLOXACIN
     Indication: Antibiotic prophylaxis
     Dosage: 4 TIMES/DAY IN THE RIGHT EYE , LEVOFLOXACIN: 1.50 %
     Route: 061
  7. DIMETHICONE [Concomitant]
     Active Substance: DIMETHICONE
     Indication: Vitrectomy
     Dosage: SILICONE OIL TAMPONADE
     Route: 065
  8. VALACYCLOVIR HYDROCHLORIDE [Concomitant]
     Active Substance: VALACYCLOVIR HYDROCHLORIDE
     Indication: Necrotising retinitis
     Dosage: 3000 MILLIGRAM DAILY; ONCE A DAY , ADDITIONAL INFO: ROUTE: {SYSTEMIC}
     Route: 050

REACTIONS (6)
  - Necrotising retinitis [Recovered/Resolved with Sequelae]
  - Epstein-Barr virus infection [Recovered/Resolved with Sequelae]
  - Candida infection [Recovered/Resolved with Sequelae]
  - Retinal detachment [Recovered/Resolved with Sequelae]
  - Glaucoma [Recovered/Resolved with Sequelae]
  - Off label use [Unknown]
